FAERS Safety Report 6406195-2 (Version None)
Quarter: 2009Q4

REPORT INFORMATION
  Report Type: 
  Country: None (occurrence: None)
  Receive Date: 20091019
  Receipt Date: 20091008
  Transmission Date: 20100525
  Serious: Yes (Other)
  Sender: FDA-Public Use
  Company Number: US-SANOFI-SYNTHELABO-A03200904170

PATIENT
  Sex: Female
  Weight: 65.8 kg

DRUGS (6)
  1. MULTAQ [Suspect]
     Indication: ARRHYTHMIA
     Route: 048
     Dates: start: 20090909, end: 20090911
  2. DIOVAN [Concomitant]
     Indication: HYPERTENSION
     Route: 065
  3. HYDROCHLOROTHIAZIDE [Concomitant]
     Indication: HYPERTENSION
     Route: 065
  4. SPIRONOLACTONE [Concomitant]
     Indication: HYPERTENSION
     Route: 065
  5. NEXIUM [Concomitant]
     Indication: GASTROOESOPHAGEAL REFLUX DISEASE
     Route: 065
  6. AMLODIPINE [Concomitant]
     Indication: HYPERTENSION
     Route: 065

REACTIONS (6)
  - BRADYCARDIA [None]
  - DIPLOPIA [None]
  - DIZZINESS [None]
  - HALLUCINATION [None]
  - HEART RATE IRREGULAR [None]
  - INSOMNIA [None]
